FAERS Safety Report 8235734-4 (Version None)
Quarter: 2012Q1

REPORT INFORMATION
  Report Type: 
  Country: None (occurrence: None)
  Receive Date: 20120326
  Receipt Date: 20120320
  Transmission Date: 20120608
  Serious: Yes (Hospitalization)
  Sender: FDA-Public Use
  Company Number: PHEH2012US005390

PATIENT
  Age: 61 Year
  Sex: Female

DRUGS (1)
  1. GILENYA [Suspect]
     Dosage: UNK
     Dates: start: 20111101

REACTIONS (3)
  - BACK PAIN [None]
  - MULTIPLE SCLEROSIS RELAPSE [None]
  - ABDOMINAL PAIN UPPER [None]
